FAERS Safety Report 24943696 (Version 1)
Quarter: 2025Q1

REPORT INFORMATION
  Report Type: Spontaneous
  Country: US (occurrence: US)
  Receive Date: 20250207
  Receipt Date: 20250207
  Transmission Date: 20250409
  Serious: Yes (Other)
  Sender: AMGEN
  Company Number: US-AMGEN-USASP2025024399

PATIENT
  Age: 68 Year
  Sex: Male

DRUGS (4)
  1. TRASTUZUMAB [Suspect]
     Active Substance: TRASTUZUMAB
     Indication: Adenocarcinoma pancreas
     Dosage: (D1), Q3WK
     Route: 065
     Dates: start: 20230426
  2. GEMCITABINE [Concomitant]
     Active Substance: GEMCITABINE
     Dosage: DAY 1 [D1] AND D8, Q3WK
  3. CISPLATIN [Concomitant]
     Active Substance: CISPLATIN
     Dosage: (D1 AND D8), Q3WK
  4. DURVALUMAB [Concomitant]
     Active Substance: DURVALUMAB
     Dosage: (D1), Q4WK

REACTIONS (1)
  - Platelet count decreased [Recovering/Resolving]

NARRATIVE: CASE EVENT DATE: 20230101
